FAERS Safety Report 6674287-9 (Version None)
Quarter: 2010Q2

REPORT INFORMATION
  Report Type: 
  Country: None (occurrence: None)
  Receive Date: 20100409
  Receipt Date: 20100330
  Transmission Date: 20101027
  Serious: Yes (Other)
  Sender: FDA-Public Use
  Company Number: JP-JNJFOC-20100305575

PATIENT
  Sex: Female

DRUGS (12)
  1. CRAVIT [Suspect]
     Indication: PNEUMONIA
     Route: 048
  2. MUCODYNE [Suspect]
     Indication: DRUG USE FOR UNKNOWN INDICATION
     Route: 048
  3. MUCOSOLVAN [Suspect]
     Indication: COUGH
     Route: 048
  4. MUCOSOLVAN [Suspect]
     Indication: DIARRHOEA
     Route: 048
  5. MUCOSOLVAN [Suspect]
     Indication: PYREXIA
     Route: 048
  6. MIYA BM [Suspect]
     Indication: DRUG USE FOR UNKNOWN INDICATION
     Route: 048
  7. BAKUMONDOUTO [Suspect]
     Indication: DRUG USE FOR UNKNOWN INDICATION
     Route: 048
  8. ROCEPHIN [Concomitant]
     Route: 041
  9. CLARITH [Concomitant]
     Indication: COUGH
  10. CLARITH [Concomitant]
     Indication: DIARRHOEA
  11. CLARITH [Concomitant]
     Indication: PYREXIA
  12. LYSOZYME [Concomitant]
     Route: 048

REACTIONS (2)
  - INTERSTITIAL LUNG DISEASE [None]
  - RESPIRATORY FAILURE [None]
